FAERS Safety Report 8029398-2 (Version None)
Quarter: 2012Q1

REPORT INFORMATION
  Report Type: 
  Country: None (occurrence: None)
  Receive Date: 20120106
  Receipt Date: 20111230
  Transmission Date: 20120608
  Serious: Yes (Other)
  Sender: FDA-Public Use
  Company Number: US-ASTRAZENECA-2012SE00071

PATIENT
  Sex: Female

DRUGS (4)
  1. ATACAND [Suspect]
     Route: 048
     Dates: start: 20040101
  2. NEXIUM [Suspect]
     Route: 048
     Dates: start: 20040101
  3. TOPROL-XL [Suspect]
     Route: 048
     Dates: start: 20040101
  4. SEROQUEL [Suspect]
     Indication: NERVE DEGENERATION
     Route: 048
     Dates: start: 20040101

REACTIONS (2)
  - MENTAL IMPAIRMENT [None]
  - MYOCARDIAL INFARCTION [None]
